FAERS Safety Report 15393509 (Version 1)
Quarter: 2018Q4

REPORT INFORMATION
  Report Type: Spontaneous
  Country: FR (occurrence: FR)
  Receive Date: 20180917
  Receipt Date: 20180917
  Transmission Date: 20190204
  Serious: Yes (Hospitalization, Other)
  Sender: FDA-Public Use
  Company Number: FR-PFIZER INC-2018368077

PATIENT
  Age: 40 Year
  Sex: Female
  Weight: 90 kg

DRUGS (6)
  1. MONACOLIN K [LOVASTATIN] [Suspect]
     Active Substance: LOVASTATIN
     Indication: DYSLIPIDAEMIA
     Dosage: MONACOLIN K
     Dates: start: 201806, end: 20180803
  2. PROPRANOLOL [Suspect]
     Active Substance: PROPRANOLOL HYDROCHLORIDE
     Dosage: 1.5 DF, 1X/DAY (0.5 - 0 - 1)
     Route: 048
     Dates: end: 201808
  3. INEXIUM [ESOMEPRAZOLE MAGNESIUM] [Suspect]
     Active Substance: ESOMEPRAZOLE MAGNESIUM
     Dosage: 1 DF, 1X/DAY
     Route: 048
     Dates: end: 201808
  4. VENTOLINE [SALBUTAMOL SULFATE] [Suspect]
     Active Substance: ALBUTEROL SULFATE
     Dosage: UNK
     Dates: end: 201808
  5. ALPRAZOLAM. [Suspect]
     Active Substance: ALPRAZOLAM
     Indication: DEPRESSION
     Dosage: 0.75 DF, 1X/DAY (0.25 - 0 - 0.50)
     Route: 048
     Dates: end: 201808
  6. SEROPRAM B [Suspect]
     Active Substance: CHOLINE\CITALOPRAM HYDROBROMIDE
     Indication: DEPRESSION
     Dosage: 1 DF, 1X/DAY
     Route: 048
     Dates: end: 201808

REACTIONS (2)
  - Rhabdomyolysis [Recovering/Resolving]
  - Blood creatine phosphokinase increased [Recovering/Resolving]

NARRATIVE: CASE EVENT DATE: 20180803
